FAERS Safety Report 8061920-2 (Version None)
Quarter: 2012Q1

REPORT INFORMATION
  Report Type: 
  Country: None (occurrence: None)
  Receive Date: 20120117
  Receipt Date: 20120110
  Transmission Date: 20120608
  Serious: Yes (Other)
  Sender: FDA-Public Use
  Company Number: TPA2012A00214

PATIENT
  Age: 68 Year
  Sex: Male

DRUGS (4)
  1. ACTOS [Suspect]
     Indication: TYPE 2 DIABETES MELLITUS
     Dosage: 30 MG, 1 IN 1 D, ORAL
     Route: 048
     Dates: start: 20100414, end: 20110101
  2. GLUCOTROL [Concomitant]
  3. VICTOZA [Concomitant]
  4. METFORMIN HCL [Concomitant]

REACTIONS (1)
  - BLADDER CANCER [None]
